FAERS Safety Report 8605056-8 (Version None)
Quarter: 2012Q3

REPORT INFORMATION
  Report Type: 
  Country: None (occurrence: None)
  Receive Date: 20120820
  Receipt Date: 20120816
  Transmission Date: 20120928
  Serious: Yes (Other)
  Sender: FDA-Public Use
  Company Number: PHHY2012VE056464

PATIENT
  Sex: Female

DRUGS (5)
  1. ZOLEDRONOC ACID [Suspect]
     Dosage: 5 MG, YEARLY
     Route: 042
     Dates: start: 20120401
  2. ZOLEDRONOC ACID [Suspect]
     Indication: OSTEOPOROSIS
     Dosage: 5 MG, YEARLY
     Route: 042
     Dates: start: 20100101
  3. NAPROXEN [Concomitant]
     Indication: PAIN
     Dosage: 250 MG/8 HOURS
     Route: 048
  4. ZOLEDRONOC ACID [Suspect]
     Dosage: 5 MG, YEARLY
     Route: 042
     Dates: start: 20110101
  5. TENSOMAX [Concomitant]
     Indication: HYPERTENSION

REACTIONS (6)
  - HYPERCHOLESTEROLAEMIA [None]
  - ARTHRITIS [None]
  - PAIN [None]
  - RHEUMATOID ARTHRITIS [None]
  - HYPERTENSION [None]
  - FEELING ABNORMAL [None]
